FAERS Safety Report 25673612 (Version 1)
Quarter: 2025Q3

REPORT INFORMATION
  Report Type: Spontaneous
  Country: US (occurrence: US)
  Receive Date: 20250813
  Receipt Date: 20250813
  Transmission Date: 20251020
  Serious: Yes (Other)
  Sender: BAXTER
  Company Number: US-BAXTER-2025BAX019510

PATIENT
  Age: 77 Year
  Sex: Male

DRUGS (2)
  1. NEXTERONE [Suspect]
     Active Substance: AMIODARONE HYDROCHLORIDE
     Indication: Atrial fibrillation
     Route: 065
     Dates: start: 201706, end: 2020
  2. NEXTERONE [Suspect]
     Active Substance: AMIODARONE HYDROCHLORIDE
     Indication: Hypertension

REACTIONS (16)
  - Graves^ disease [Recovering/Resolving]
  - Exophthalmos [Recovering/Resolving]
  - Eyelid ptosis [Recovering/Resolving]
  - Thyroid stimulating immunoglobulin increased [Recovering/Resolving]
  - Blood thyroid stimulating hormone decreased [Recovering/Resolving]
  - Tri-iodothyronine increased [Recovering/Resolving]
  - Thyroxine free increased [Recovering/Resolving]
  - Weight decreased [Recovering/Resolving]
  - Peripheral swelling [Recovering/Resolving]
  - Erythema [Recovering/Resolving]
  - Periorbital oedema [Recovering/Resolving]
  - Conjunctival hyperaemia [Recovering/Resolving]
  - Peau d^orange [Recovering/Resolving]
  - Thyroid dermatopathy [Recovering/Resolving]
  - Goitre [Recovering/Resolving]
  - Diplopia [Recovering/Resolving]

NARRATIVE: CASE EVENT DATE: 20200101
